FAERS Safety Report 20356956 (Version 1)
Quarter: 2022Q1

REPORT INFORMATION
  Report Type: Spontaneous
  Country: FR (occurrence: FR)
  Receive Date: 20220120
  Receipt Date: 20220120
  Transmission Date: 20220423
  Serious: Yes (Life-Threatening, Other)
  Sender: FDA-Public Use
  Company Number: None

PATIENT
  Age: 28 Year
  Sex: Male

DRUGS (3)
  1. DIAZEPAM [Suspect]
     Active Substance: DIAZEPAM
     Dosage: 10 TABLETS OF 20 MG (200 MG) , THERAPY START DATE AND END DATE : NASK
     Route: 065
  2. METHADONE [Suspect]
     Active Substance: METHADONE HYDROCHLORIDE
     Dosage: 2 TABS OF 40MG (80MG),  THERAPY START DATE AND END DATE : NASK
     Route: 065
  3. COCAINE [Suspect]
     Active Substance: COCAINE
     Dosage: CRACK (COCAINE BASEE), THERAPY START DATE AND END DATE : NASK
     Route: 065

REACTIONS (5)
  - Coma [Recovered/Resolved]
  - Intentional product misuse [Unknown]
  - Respiratory depression [Recovered/Resolved]
  - Drug abuse [Unknown]
  - Miosis [Recovered/Resolved]

NARRATIVE: CASE EVENT DATE: 20210721
